FAERS Safety Report 7605432-6 (Version None)
Quarter: 2011Q3

REPORT INFORMATION
  Report Type: 
  Country: None (occurrence: None)
  Receive Date: 20110713
  Receipt Date: 20110629
  Transmission Date: 20111222
  Serious: Yes (Other)
  Sender: FDA-Public Use
  Company Number: US-BAYER-2011-001522

PATIENT
  Age: 23 Year
  Sex: Female
  Weight: 49.887 kg

DRUGS (11)
  1. MAXALT [Concomitant]
     Indication: MIGRAINE
     Dosage: UNK
     Dates: start: 20080101
  2. MIDODRINE HYDROCHLORIDE [Concomitant]
     Indication: HYPOTENSION
     Dosage: UNK
     Dates: start: 20081001
  3. PREVACID [Concomitant]
  4. DILTIAZEM [Concomitant]
  5. YAZ [Suspect]
     Indication: PREMENSTRUAL SYNDROME
     Dosage: UNK
     Route: 048
     Dates: start: 20080801, end: 20090801
  6. AZITHROMYCIN [Concomitant]
  7. PROMETHAZINE [Concomitant]
     Indication: ABDOMINAL PAIN UPPER
     Dosage: UNK
     Dates: start: 20081001
  8. IBUPROFEN [Concomitant]
     Dosage: UNK UNK, PRN
  9. YAZ [Suspect]
  10. LEXAPRO [Concomitant]
  11. CLONAZEPAM [Concomitant]

REACTIONS (8)
  - CHOLECYSTITIS [None]
  - CHOLELITHIASIS [None]
  - PAIN [None]
  - GALLBLADDER DISORDER [None]
  - SYNCOPE [None]
  - EMOTIONAL DISTRESS [None]
  - ABDOMINAL PAIN UPPER [None]
  - INJURY [None]
